FAERS Safety Report 5734680-5 (Version None)
Quarter: 2008Q2

REPORT INFORMATION
  Report Type: 
  Country: None (occurrence: None)
  Receive Date: 20080512
  Receipt Date: 20080430
  Transmission Date: 20081010
  Serious: Yes (Other)
  Sender: FDA-Public Use
  Company Number: NO-WYE-H03944608

PATIENT
  Age: 77 Year
  Sex: Male

DRUGS (4)
  1. CORDARONE [Suspect]
     Indication: ARRHYTHMIA
     Dosage: DOSE AND FREQUENCY NOT SPECIFIED
     Route: 065
     Dates: start: 20080101, end: 20080101
  2. CORDARONE [Suspect]
     Indication: PROPHYLAXIS
  3. MAREVAN [Concomitant]
     Dosage: DOSE AND FREQUENCY NOT SPECIFIED
     Route: 065
  4. SOTALOL HCL [Concomitant]
     Dosage: 80 MG, FREQUENCY NOT SPECIFIED
     Route: 048

REACTIONS (3)
  - BLOOD PRESSURE SYSTOLIC DECREASED [None]
  - LOSS OF CONSCIOUSNESS [None]
  - PRESYNCOPE [None]
